FAERS Safety Report 5378982-3 (Version None)
Quarter: 2007Q3

REPORT INFORMATION
  Report Type: 
  Country: None (occurrence: None)
  Receive Date: 20070705
  Receipt Date: 20070626
  Transmission Date: 20080115
  Serious: Yes (Death, Hospitalization)
  Sender: FDA-Public Use
  Company Number: SE-BRISTOL-MYERS SQUIBB COMPANY-13797048

PATIENT
  Age: 75 Year
  Sex: Male

DRUGS (6)
  1. BARACLUDE [Suspect]
     Indication: HEPATITIS B
     Dates: start: 20070308, end: 20070326
  2. SIMVASTATIN [Concomitant]
  3. MINIDIAB [Concomitant]
  4. TENORMIN [Concomitant]
  5. ZOLPIDEM TARTRATE [Concomitant]
  6. ATACAND HCT [Concomitant]

REACTIONS (2)
  - MULTI-ORGAN FAILURE [None]
  - SEPSIS [None]
